FAERS Safety Report 13499656 (Version 7)
Quarter: 2019Q4

REPORT INFORMATION
  Report Type: Spontaneous
  Country: CA (occurrence: CA)
  Receive Date: 20170501
  Receipt Date: 20191114
  Transmission Date: 20200122
  Serious: Yes (Hospitalization, Other)
  Sender: FDA-Public Use
  Company Number: CA-PFIZER INC-2017165428

PATIENT
  Age: 40 Year
  Sex: Female
  Weight: 103 kg

DRUGS (20)
  1. PANTOLOC [Suspect]
     Active Substance: PANTOPRAZOLE SODIUM
     Dosage: 80 MILLIGRAM, QD
     Route: 065
     Dates: start: 2016
  2. SEROQUEL XR [Concomitant]
     Active Substance: QUETIAPINE FUMARATE
     Dosage: 75 MILLIGRAM, QD
     Dates: start: 2015
  3. SEROQUEL XR [Concomitant]
     Active Substance: QUETIAPINE FUMARATE
     Dosage: 150 MILLIGRAM
     Route: 065
  4. CODEINE [Suspect]
     Active Substance: CODEINE
     Dosage: 16 MILLIGRAM, BID
     Route: 065
     Dates: start: 2015
  5. EFFEXOR [Suspect]
     Active Substance: VENLAFAXINE HYDROCHLORIDE
     Dosage: 187 MILLIGRAM
     Route: 065
  6. PANTOLOC [Suspect]
     Active Substance: PANTOPRAZOLE SODIUM
     Dosage: 40 MILLIGRAM, BID
     Route: 065
     Dates: start: 2016
  7. CALCIUM CARBONATE. [Suspect]
     Active Substance: CALCIUM CARBONATE
     Dosage: 1000 MILLIGRAM, QD
     Route: 065
     Dates: start: 2016
  8. SEROQUEL [Concomitant]
     Active Substance: QUETIAPINE FUMARATE
     Dosage: 75 MG, DAILY
     Dates: start: 2015
  9. ZOPLICONE [Concomitant]
     Active Substance: ZOPICLONE
     Dosage: 18.75 MG, DAILY AT BEDTIME
     Route: 065
     Dates: start: 2015
  10. FOLIC ACID. [Concomitant]
     Active Substance: FOLIC ACID
     Dosage: 2000 IU, 1X/DAY
     Route: 065
     Dates: start: 2016
  11. CALCIUM CARBONATE. [Suspect]
     Active Substance: CALCIUM CARBONATE
     Dosage: 500 MILLIGRAM, BID
     Route: 065
     Dates: start: 2016
  12. VITAMIN B NOS [Concomitant]
     Active Substance: VITAMIN B
     Dosage: 2000 IU, DAILY
     Dates: start: 2016
  13. FOLIC ACID. [Concomitant]
     Active Substance: FOLIC ACID
     Dosage: 200 INTERNATIONAL UNIT
     Route: 065
  14. PREDNISONE. [Concomitant]
     Active Substance: PREDNISONE
     Dosage: 40 MG, QD
     Route: 048
     Dates: start: 20170417
  15. EFFEXOR [Suspect]
     Active Substance: VENLAFAXINE HYDROCHLORIDE
     Dosage: 187 MILLIGRAM, QD
     Route: 065
     Dates: start: 2015
  16. SEROQUEL XR [Concomitant]
     Active Substance: QUETIAPINE FUMARATE
     Dosage: 150 MG, DAILY
     Route: 065
     Dates: start: 2015
  17. CODEINE [Suspect]
     Active Substance: CODEINE
     Dosage: 32 MILLIGRAM, QD
     Route: 065
     Dates: start: 2015
  18. SEROQUEL XR [Concomitant]
     Active Substance: QUETIAPINE FUMARATE
     Dosage: 75 MILLIGRAM
     Route: 065
  19. ZOPLICONE [Concomitant]
     Active Substance: ZOPICLONE
     Dosage: 18.75 MILLIGRAM
     Route: 065
  20. INFLIXIMAB [Concomitant]
     Active Substance: INFLIXIMAB
     Dosage: 550 MG, UNK
     Route: 042
     Dates: start: 20170428

REACTIONS (12)
  - Diarrhoea [Recovering/Resolving]
  - Irritable bowel syndrome [Not Recovered/Not Resolved]
  - Sleep disorder [Not Recovered/Not Resolved]
  - Pain [Not Recovered/Not Resolved]
  - Condition aggravated [Not Recovered/Not Resolved]
  - Flatulence [Not Recovered/Not Resolved]
  - Influenza like illness [Not Recovered/Not Resolved]
  - Cough [Not Recovered/Not Resolved]
  - Crohn^s disease [Unknown]
  - Feeling hot [Not Recovered/Not Resolved]
  - Haematochezia [Recovering/Resolving]
  - Haemorrhoids [Not Recovered/Not Resolved]

NARRATIVE: CASE EVENT DATE: 2017
